FAERS Safety Report 6399853-X (Version None)
Quarter: 2009Q4

REPORT INFORMATION
  Report Type: 
  Country: None (occurrence: None)
  Receive Date: 20091014
  Receipt Date: 20091005
  Transmission Date: 20100525
  Serious: Yes (Other)
  Sender: FDA-Public Use
  Company Number: GB-PFIZER INC-2009187433

PATIENT
  Age: 62 Year

DRUGS (3)
  1. CELEBREX [Suspect]
     Indication: SCIATICA
     Dosage: 100 MG, 2X/DAY
     Route: 048
     Dates: start: 20081127, end: 20081128
  2. CELEBREX [Suspect]
     Indication: MUSCLE STRAIN
  3. PARACETAMOL [Concomitant]
     Dosage: 1000 MG, UNK
     Route: 048
     Dates: start: 20090203

REACTIONS (18)
  - ABDOMINAL PAIN UPPER [None]
  - CATARACT [None]
  - DELUSION [None]
  - DIARRHOEA [None]
  - DIZZINESS [None]
  - DRUG INEFFECTIVE [None]
  - DYSGEUSIA [None]
  - DYSPEPSIA [None]
  - HEADACHE [None]
  - HYPERSENSITIVITY [None]
  - MENTAL DISORDER [None]
  - MOUTH ULCERATION [None]
  - MUSCLE SPASMS [None]
  - MYALGIA [None]
  - NAUSEA [None]
  - NERVOUSNESS [None]
  - PHARYNGEAL ULCERATION [None]
  - TINNITUS [None]
